FAERS Safety Report 6322014-7 (Version None)
Quarter: 2009Q3

REPORT INFORMATION
  Report Type: 
  Country: None (occurrence: None)
  Receive Date: 20090821
  Receipt Date: 20090821
  Transmission Date: 20100115
  Serious: Yes (Other)
  Sender: FDA-Public Use
  Company Number: None

PATIENT
  Age: 67 Year
  Sex: Female
  Weight: 90.7194 kg

DRUGS (2)
  1. ACTONEL [Suspect]
     Indication: OSTEOPENIA
     Dosage: 150 MG OR ONE TABLET ONE TIME A MONTH PO
     Route: 048
     Dates: start: 20090201, end: 20090628
  2. ACTONEL [Suspect]
     Indication: OSTEOPENIA
     Dosage: 35 MG OR ONE TABLET ONCE A WEEK PO
     Route: 048
     Dates: start: 20070701, end: 20090101

REACTIONS (6)
  - ABDOMINAL DISTENSION [None]
  - DIARRHOEA [None]
  - FLATULENCE [None]
  - HYPOPHAGIA [None]
  - INFLUENZA LIKE ILLNESS [None]
  - MUSCLE SPASMS [None]
